FAERS Safety Report 4506576-8 (Version None)
Quarter: 2004Q4

REPORT INFORMATION
  Report Type: 
  Country: None (occurrence: None)
  Receive Date: 20041122
  Receipt Date: 20040505
  Transmission Date: 20050328
  Serious: Yes (Other)
  Sender: FDA-Public Use
  Company Number: PHNU2004DE01734

PATIENT
  Age: 61 Year
  Sex: Male
  Weight: 80 kg

DRUGS (3)
  1. LAMISIL [Suspect]
     Indication: ONYCHOMYCOSIS
     Dosage: 250 MG, QD
     Route: 048
     Dates: start: 20010807, end: 20010913
  2. LAMISIL [Suspect]
     Dosage: 250 MG, QOD
     Route: 048
     Dates: start: 20010914, end: 20020205
  3. PROSTAMED [Concomitant]

REACTIONS (8)
  - ASTHENIA [None]
  - BURNING SENSATION [None]
  - ERECTILE DYSFUNCTION [None]
  - MYALGIA [None]
  - PARAESTHESIA [None]
  - PERIPHERAL COLDNESS [None]
  - POLYNEUROPATHY [None]
  - PRURITUS [None]
